FAERS Safety Report 6391831-X (Version None)
Quarter: 2009Q4

REPORT INFORMATION
  Report Type: 
  Country: None (occurrence: None)
  Receive Date: 20091007
  Receipt Date: 20091005
  Transmission Date: 20100525
  Serious: Yes (Death)
  Sender: FDA-Public Use
  Company Number: TH-EISAI INC.-E2020-05303-SPO-TH

PATIENT
  Age: 58 Year
  Sex: Male

DRUGS (4)
  1. ARICEPT [Suspect]
     Indication: DEMENTIA
     Route: 048
     Dates: start: 20090929, end: 20091001
  2. ZYPREXA [Concomitant]
     Indication: AGITATION
     Route: 048
     Dates: start: 20090929, end: 20090930
  3. LEXAPRO [Concomitant]
     Indication: AGITATION
     Route: 048
     Dates: start: 20090929, end: 20090930
  4. CLONAZEPAM [Concomitant]
     Indication: AGITATION
     Route: 048
     Dates: start: 20090929, end: 20090930

REACTIONS (1)
  - CARDIAC ARREST [None]
